FAERS Safety Report 21310515 (Version 3)
Quarter: 2023Q2

REPORT INFORMATION
  Report Type: Spontaneous
  Country: NL (occurrence: NL)
  Receive Date: 20220909
  Receipt Date: 20230509
  Transmission Date: 20230722
  Serious: Yes (Other)
  Sender: FDA-Public Use
  Company Number: NL-CELLTRION INC.-2022NL014459

PATIENT

DRUGS (3)
  1. INFLIXIMAB [Suspect]
     Active Substance: INFLIXIMAB
     Indication: Colitis ulcerative
     Dosage: 300 MG EVERY 8 WEEKS
     Route: 042
     Dates: start: 202112
  2. INFLIXIMAB [Suspect]
     Active Substance: INFLIXIMAB
     Dosage: ONE INJECTION PER 7 WEEKS
     Route: 042
     Dates: start: 202207
  3. PENTASA [Suspect]
     Active Substance: MESALAMINE
     Dosage: 2000 MILLIGRAM, BID

REACTIONS (6)
  - Colitis ulcerative [Unknown]
  - Appendicitis [Unknown]
  - COVID-19 [Unknown]
  - Norovirus infection [Unknown]
  - Influenza [Unknown]
  - Off label use [Unknown]

NARRATIVE: CASE EVENT DATE: 20220201
